FAERS Safety Report 5801434-0 (Version None)
Quarter: 2008Q3

REPORT INFORMATION
  Report Type: 
  Country: None (occurrence: None)
  Receive Date: 20080703
  Receipt Date: 20080703
  Transmission Date: 20090109
  Serious: Yes (Death, Hospitalization)
  Sender: FDA-Public Use
  Company Number: None

PATIENT
  Sex: Female
  Weight: 66.4 kg

DRUGS (4)
  1. FLUOROURACIL [Suspect]
     Dates: end: 20080609
  2. LEUCOVORIN CALCIUM [Suspect]
     Dates: end: 20080609
  3. ELOXATIN [Suspect]
     Dates: end: 20080609
  4. NEUPOGEN [Concomitant]

REACTIONS (9)
  - NAUSEA [None]
  - NEUTROPHIL COUNT DECREASED [None]
  - RESPIRATORY FAILURE [None]
  - SINUS HEADACHE [None]
  - SUBDURAL HAEMATOMA [None]
  - THROMBOCYTOPENIA [None]
  - UNRESPONSIVE TO STIMULI [None]
  - VOMITING [None]
  - WHITE BLOOD CELL COUNT INCREASED [None]
